FAERS Safety Report 9621244 (Version 2)
Quarter: 2013Q4

REPORT INFORMATION
  Report Type: Report from Study
  Country: CA (occurrence: CA)
  Receive Date: 20131015
  Receipt Date: 20131202
  Transmission Date: 20140711
  Serious: Yes (Life-Threatening, Hospitalization)
  Sender: FDA-Public Use
  Company Number: CA-JNJFOC-20131007888

PATIENT
  Age: 11 Year
  Sex: Female
  Weight: 45 kg

DRUGS (5)
  1. REMICADE [Suspect]
     Indication: COLITIS ULCERATIVE
     Route: 042
  2. REMICADE [Suspect]
     Indication: COLITIS ULCERATIVE
     Dosage: 52 WEEKS
     Route: 042
     Dates: start: 20130801, end: 20130810
  3. PREDNISONE [Concomitant]
     Route: 065
  4. ASACOL [Concomitant]
     Route: 065
  5. ACETAMINOPHEN [Concomitant]
     Indication: PREMEDICATION
     Route: 048

REACTIONS (2)
  - Leukopenia [Unknown]
  - Febrile neutropenia [Unknown]
